FAERS Safety Report 6421531-9 (Version None)
Quarter: 2009Q4

REPORT INFORMATION
  Report Type: 
  Country: None (occurrence: None)
  Receive Date: 20091030
  Receipt Date: 20091020
  Transmission Date: 20100525
  Serious: Yes (Other)
  Sender: FDA-Public Use
  Company Number: US-WYE-H11724009

PATIENT
  Sex: Male

DRUGS (5)
  1. PRISTIQ [Suspect]
     Indication: BIPOLAR DISORDER
     Route: 048
     Dates: start: 20080601, end: 20090901
  2. INDERAL [Concomitant]
     Dosage: UNKNOWN
  3. KLONOPIN [Concomitant]
     Dosage: UNKNOWN
  4. SEROQUEL [Concomitant]
     Dosage: UNKNOWN
  5. DEPAKOTE [Concomitant]
     Dosage: UNKNOWN

REACTIONS (3)
  - CONVULSION [None]
  - DRUG WITHDRAWAL SYNDROME [None]
  - HYPERHIDROSIS [None]
